FAERS Safety Report 21669031 (Version 1)
Quarter: 2022Q4

REPORT INFORMATION
  Report Type: Spontaneous
  Country: SA (occurrence: SA)
  Receive Date: 20221201
  Receipt Date: 20221201
  Transmission Date: 20230113
  Serious: Yes (Hospitalization, Other)
  Sender: FDA-Public Use
  Company Number: SA-BAXTER-2022BAX025569

PATIENT
  Age: 42 Year
  Sex: Female

DRUGS (5)
  1. CYCLOPHOSPHAMIDE [Suspect]
     Active Substance: CYCLOPHOSPHAMIDE
     Indication: Invasive ductal breast carcinoma
     Dosage: 4 BIWEEKLY CYCLES OF CHEMOTHERAPY OF DOSE-DENSE AC FOLLOWED BY 4 CYCLES OF DOCETAXEL
     Route: 065
  2. CYCLOPHOSPHAMIDE [Suspect]
     Active Substance: CYCLOPHOSPHAMIDE
     Indication: Triple negative breast cancer
  3. DOXORUBICIN [Suspect]
     Active Substance: DOXORUBICIN
     Indication: Invasive ductal breast carcinoma
     Dosage: 4 BIWEEKLY CYCLES OF CHEMOTHERAPY OF DOSE-DENSE AC FOLLOWED BY 4 CYCLES OF DOCETAXEL
     Route: 065
  4. DOXORUBICIN [Suspect]
     Active Substance: DOXORUBICIN
     Indication: Triple negative breast cancer
  5. ESCITALOPRAM [Concomitant]
     Active Substance: ESCITALOPRAM OXALATE
     Indication: Generalised anxiety disorder
     Route: 065

REACTIONS (14)
  - Substance-induced psychotic disorder [Recovered/Resolved]
  - Psychotic symptom [Recovered/Resolved]
  - Insomnia [Recovered/Resolved]
  - Anxiety [Recovered/Resolved]
  - Irritability [Recovered/Resolved]
  - Agitation [Recovered/Resolved]
  - Disorganised speech [Recovered/Resolved]
  - Abnormal behaviour [Recovered/Resolved]
  - Paranoia [Recovered/Resolved]
  - Patient uncooperative [Recovered/Resolved]
  - Restlessness [Recovered/Resolved]
  - Flight of ideas [Recovered/Resolved]
  - Persecutory delusion [Recovered/Resolved]
  - Suspiciousness [Recovered/Resolved]
